FAERS Safety Report 14835421 (Version 3)
Quarter: 2018Q2

REPORT INFORMATION
  Report Type: Spontaneous
  Country: US (occurrence: US)
  Receive Date: 20180502
  Receipt Date: 20180618
  Transmission Date: 20180711
  Serious: Yes (Hospitalization, Other)
  Sender: FDA-Public Use
  Company Number: US-BIOGEN-2018BI00562140

PATIENT
  Sex: Female

DRUGS (1)
  1. TECFIDERA [Suspect]
     Active Substance: DIMETHYL FUMARATE
     Indication: MULTIPLE SCLEROSIS
     Route: 065
     Dates: start: 20170414, end: 201801

REACTIONS (6)
  - Peroneal nerve palsy [Unknown]
  - Cerebrovascular accident [Unknown]
  - Memory impairment [Unknown]
  - Pain in extremity [Unknown]
  - Migraine [Unknown]
  - Hypertension [Unknown]
